FAERS Safety Report 9727627 (Version 1)
Quarter: 2013Q4

REPORT INFORMATION
  Report Type: Spontaneous
  Country: US (occurrence: US)
  Receive Date: 20131203
  Receipt Date: 20131203
  Transmission Date: 20140711
  Serious: No
  Sender: FDA-Public Use
  Company Number: US-009507513-1312USA001377

PATIENT
  Sex: Male

DRUGS (2)
  1. AMITRIPTYLINE HYDROCHLORIDE [Suspect]
     Indication: SLEEP DISORDER
     Dosage: UNK
     Route: 048
  2. TRAZODONE HYDROCHLORIDE [Concomitant]

REACTIONS (3)
  - Anxiety [Unknown]
  - Hypotonia [Unknown]
  - Nausea [Unknown]
